FAERS Safety Report 7095580-4 (Version None)
Quarter: 2010Q4

REPORT INFORMATION
  Report Type: 
  Country: None (occurrence: None)
  Receive Date: 20101103
  Receipt Date: 20101022
  Transmission Date: 20110411
  Serious: Yes (Hospitalization)
  Sender: FDA-Public Use
  Company Number: 020296

PATIENT
  Sex: Male
  Weight: 90 kg

DRUGS (7)
  1. VIMPAT [Suspect]
     Indication: EPILEPSY
     Dosage: 250 TWICE DAILY ORAL
     Route: 048
     Dates: start: 20090115
  2. OXCARBAZEPINE [Suspect]
  3. LICARBAZEPINE [Concomitant]
  4. PASPERTIN [Concomitant]
  5. NOVALGIN [Concomitant]
  6. VOMEX A [Concomitant]
  7. KEPPRA [Concomitant]

REACTIONS (3)
  - ILL-DEFINED DISORDER [None]
  - INFLAMMATION [None]
  - MEDICAL DEVICE COMPLICATION [None]
